FAERS Safety Report 20919207 (Version 1)
Quarter: 2022Q2

REPORT INFORMATION
  Report Type: Spontaneous
  Country: JP (occurrence: JP)
  Receive Date: 20220606
  Receipt Date: 20220606
  Transmission Date: 20220721
  Serious: Yes (Other)
  Sender: FDA-Public Use
  Company Number: JP-GLAXOSMITHKLINE-JP2022JPN086632

PATIENT

DRUGS (12)
  1. LAMICTAL [Suspect]
     Active Substance: LAMOTRIGINE
     Indication: Bipolar disorder
     Dosage: 25 MG, QD
     Route: 048
     Dates: start: 20220509, end: 20220522
  2. LATUDA [Concomitant]
     Active Substance: LURASIDONE HYDROCHLORIDE
     Dosage: UNK
  3. TRAZODONE HYDROCHLORIDE [Concomitant]
     Active Substance: TRAZODONE HYDROCHLORIDE
     Dosage: UNK
  4. DAYVIGO [Concomitant]
     Active Substance: LEMBOREXANT
     Dosage: UNK
  5. VALSARTAN OD [Concomitant]
     Dosage: UNK
  6. AMLODIPINE BESYLATE [Concomitant]
     Active Substance: AMLODIPINE BESYLATE
     Dosage: UNK
  7. BAYASPIRIN TABLETS [Concomitant]
     Dosage: UNK
  8. ETHYL ICOSAPENTATE GRANULAR CAPSULE [Concomitant]
     Dosage: UNK
  9. METFORMIN HYDROCHLORIDE [Concomitant]
     Active Substance: METFORMIN HYDROCHLORIDE
     Dosage: UNK
  10. EQUA TABLETS [Concomitant]
     Dosage: UNK
  11. VALPROATE SODIUM [Concomitant]
     Active Substance: VALPROATE SODIUM
     Dosage: UNK
     Dates: end: 202205
  12. VALPROATE SODIUM [Concomitant]
     Active Substance: VALPROATE SODIUM
     Dosage: UNK
     Dates: start: 20220530

REACTIONS (5)
  - Pyrexia [Recovered/Resolved]
  - Eosinophil count increased [Recovering/Resolving]
  - Headache [Recovering/Resolving]
  - Malaise [Recovering/Resolving]
  - Conjunctival hyperaemia [Unknown]

NARRATIVE: CASE EVENT DATE: 20220521
